FAERS Safety Report 21936263 (Version 1)
Quarter: 2023Q1

REPORT INFORMATION
  Report Type: Spontaneous
  Country: DE (occurrence: DE)
  Receive Date: 20230201
  Receipt Date: 20230201
  Transmission Date: 20230418
  Serious: Yes (Other)
  Sender: FDA-Public Use
  Company Number: DE-ALIMERA SCIENCES LIMITED-DE-A16013-23-000020

PATIENT
  Sex: Female

DRUGS (2)
  1. ILUVIEN [Suspect]
     Active Substance: FLUOCINOLONE ACETONIDE
     Indication: Uveitis
     Dosage: 0.25 MICROGRAM, QD -UNKNOWN EYE
     Route: 031
     Dates: start: 202109, end: 2022
  2. OZURDEX [Concomitant]
     Active Substance: DEXAMETHASONE
     Indication: Uveitis
     Dosage: UNK
     Route: 065
     Dates: start: 202209

REACTIONS (2)
  - Retinal detachment [Recovering/Resolving]
  - Medical device removal [Recovered/Resolved]

NARRATIVE: CASE EVENT DATE: 20220901
